FAERS Safety Report 6801099-5 (Version None)
Quarter: 2010Q2

REPORT INFORMATION
  Report Type: 
  Country: None (occurrence: None)
  Receive Date: 20100629
  Receipt Date: 20100618
  Transmission Date: 20101027
  Serious: Yes (Death, Other)
  Sender: FDA-Public Use
  Company Number: US-AMGEN-QUU413337

PATIENT
  Sex: Male
  Weight: 80 kg

DRUGS (6)
  1. NPLATE [Suspect]
     Indication: IDIOPATHIC THROMBOCYTOPENIC PURPURA
     Route: 058
     Dates: start: 20090515, end: 20090605
  2. RITUXIMAB [Concomitant]
     Dates: start: 20090508, end: 20090530
  3. NEXIUM [Concomitant]
     Route: 048
  4. ASTELIN [Concomitant]
     Route: 045
  5. ASPIRIN [Concomitant]
     Route: 048
  6. MICARDIS HCT [Concomitant]
     Route: 048

REACTIONS (13)
  - AGITATION [None]
  - ATRIAL FIBRILLATION [None]
  - AXILLARY VEIN THROMBOSIS [None]
  - IDIOPATHIC PULMONARY FIBROSIS [None]
  - LEUKOCYTOSIS [None]
  - NORMOCHROMIC NORMOCYTIC ANAEMIA [None]
  - POST PROCEDURAL HAEMORRHAGE [None]
  - PULMONARY ALVEOLAR HAEMORRHAGE [None]
  - PYREXIA [None]
  - RENAL FAILURE ACUTE [None]
  - SCIATICA [None]
  - THROMBOCYTOPENIA [None]
  - URAEMIC ENCEPHALOPATHY [None]
